FAERS Safety Report 7245563-6 (Version None)
Quarter: 2011Q1

REPORT INFORMATION
  Report Type: 
  Country: None (occurrence: None)
  Receive Date: 20110126
  Receipt Date: 20110117
  Transmission Date: 20110831
  Serious: Yes (Other)
  Sender: FDA-Public Use
  Company Number: PHHY2011JP03798

PATIENT

DRUGS (1)
  1. NEORAL [Suspect]
     Indication: PSORIASIS
     Dosage: 150 MG,DAILY IN TWO DIVIDED DOSES
     Route: 048

REACTIONS (3)
  - BLOOD TRIGLYCERIDES INCREASED [None]
  - ZINC SULPHATE TURBIDITY ABNORMAL [None]
  - BLOOD LACTATE DEHYDROGENASE INCREASED [None]
